FAERS Safety Report 11721150 (Version 2)
Quarter: 2018Q1

REPORT INFORMATION
  Report Type: Spontaneous
  Country: KR (occurrence: KR)
  Receive Date: 20151110
  Receipt Date: 20180302
  Transmission Date: 20180508
  Serious: Yes (Death)
  Sender: FDA-Public Use
  Company Number: KR-IKARIA-201511000278

PATIENT
  Age: 1 Day
  Sex: Male
  Weight: .96 kg

DRUGS (6)
  1. GENTAMYCIN [Concomitant]
     Active Substance: GENTAMICIN
     Indication: INFECTION
     Dosage: 5MG/1DAY
  2. AMPICILLIN [Concomitant]
     Active Substance: AMPICILLIN
     Indication: INFECTION
     Dosage: 50MG/1DAY
  3. INOMAX [Suspect]
     Active Substance: NITRIC OXIDE
     Indication: PERSISTENT FOETAL CIRCULATION
     Dosage: 20 PPM, CONTINUOUS
     Dates: start: 20151027, end: 20151028
  4. PHENOBARBITAL. [Concomitant]
     Active Substance: PHENOBARBITAL
     Indication: SEIZURE
     Dosage: 19 MG/1 DAY
  5. VANCOMYCIN [Concomitant]
     Active Substance: VANCOMYCIN
     Indication: INFECTION
     Dosage: 10MG/1DAY
  6. CEFOTAXIME [Concomitant]
     Active Substance: CEFOTAXIME SODIUM
     Indication: INFECTION
     Dosage: 50MG/1DAY

REACTIONS (2)
  - Persistent foetal circulation [Fatal]
  - Neonatal respiratory distress syndrome [Fatal]

NARRATIVE: CASE EVENT DATE: 20151028
